FAERS Safety Report 10362832 (Version 1)
Quarter: 2014Q1

REPORT INFORMATION
  Report Type: Spontaneous
  Country: US (occurrence: None)
  Receive Date: 20140306
  Receipt Date: 20140306
  Transmission Date: 20141002
  Serious: Yes (Other)
  Sender: FDA-Public Use
  Company Number: 163-21880-13060744

PATIENT
  Age: 77 Year
  Sex: Female
  Weight: 55.3 kg

DRUGS (7)
  1. REVLIMID [Suspect]
     Indication: MYELODYSPLASTIC SYNDROME
     Route: 048
     Dates: start: 201304, end: 2013
  2. LEVOTHYROXINE (LEVOTHYROXINE) (UNKNOWN) [Concomitant]
  3. MULTIVITAMINS (MULTIVITAMINS) (TABLETS) [Concomitant]
  4. OMEPRAZOLE (OMEPRAZOLE) (UNKNOWN) [Concomitant]
  5. PAROXETINE HCL (PAROXETINE HYDROCHLORIDE) (UNKNOWN) [Concomitant]
  6. VITAMIN D (ERGOCALCIFEROL) (TABLETS) [Concomitant]
  7. WARFARIN (WARFARIN) (UNKNOWN) [Concomitant]

REACTIONS (3)
  - Hypersensitivity [None]
  - Stomatitis [None]
  - Torticollis [None]
